FAERS Safety Report 9109054 (Version 3)
Quarter: 2014Q1

REPORT INFORMATION
  Report Type: Report from Study
  Country: JP (occurrence: JP)
  Receive Date: 20130222
  Receipt Date: 20140131
  Transmission Date: 20141002
  Serious: Yes (Other)
  Sender: FDA-Public Use
  Company Number: JP-AMGEN-JPNCT2013002833

PATIENT
  Age: 56 Year
  Sex: Male

DRUGS (10)
  1. DARBEPOETIN ALFA [Suspect]
     Indication: NEPHROGENIC ANAEMIA
     Dosage: 30 MUG, QD
     Route: 058
     Dates: start: 20101025
  2. DOGMATYL [Concomitant]
     Indication: RENAL FAILURE CHRONIC
     Dosage: 50 MG, UNK
     Route: 048
     Dates: start: 20120825
  3. PERSANTIN [Concomitant]
     Indication: GLOMERULONEPHRITIS CHRONIC
     Dosage: UNK
     Route: 048
  4. URINORM [Concomitant]
     Dosage: UNK
     Route: 048
  5. FAMOTIDINE [Concomitant]
     Dosage: UNK
     Route: 048
  6. MICARDIS [Concomitant]
     Dosage: UNK
     Route: 048
  7. NORVASC [Concomitant]
     Dosage: UNK
     Route: 048
  8. UREPEARL [Concomitant]
     Dosage: UNK
     Route: 061
  9. FEBURIC [Concomitant]
     Indication: GLOMERULONEPHRITIS CHRONIC
     Dosage: UNK
     Route: 048
  10. FOSRENOL [Concomitant]
     Dosage: UNK
     Route: 048

REACTIONS (7)
  - Myelodysplastic syndrome [Recovering/Resolving]
  - Hypercalcaemic nephropathy [Recovering/Resolving]
  - Hyperkalaemia [Recovering/Resolving]
  - Upper respiratory tract inflammation [Recovered/Resolved]
  - Decreased appetite [Recovered/Resolved]
  - Upper respiratory tract inflammation [Recovered/Resolved]
  - Influenza [Recovered/Resolved]
